FAERS Safety Report 22226947 (Version 1)
Quarter: 2023Q2

REPORT INFORMATION
  Report Type: Spontaneous
  Country: US (occurrence: None)
  Receive Date: 20230419
  Receipt Date: 20230419
  Transmission Date: 20230721
  Serious: Yes (Hospitalization)
  Sender: FDA-Public Use
  Company Number: 2023A084802

PATIENT
  Sex: Male

DRUGS (2)
  1. FARXIGA [Suspect]
     Active Substance: DAPAGLIFLOZIN PROPANEDIOL
     Indication: Diabetes mellitus
     Route: 048
     Dates: start: 202303, end: 2023
  2. OZEMPIC [Concomitant]
     Active Substance: SEMAGLUTIDE

REACTIONS (12)
  - Penis disorder [Unknown]
  - Generalised oedema [Unknown]
  - Testicular swelling [Unknown]
  - Skin irritation [Unknown]
  - Pruritus [Unknown]
  - Rash [Unknown]
  - Somnolence [Unknown]
  - Confusional state [Unknown]
  - Candida infection [Unknown]
  - Peripheral swelling [Unknown]
  - Skin exfoliation [Unknown]
  - Weight increased [Unknown]
